FAERS Safety Report 10139741 (Version 3)
Quarter: 2015Q2

REPORT INFORMATION
  Report Type: Spontaneous
  Country: US (occurrence: US)
  Receive Date: 20140429
  Receipt Date: 20150427
  Transmission Date: 20150821
  Serious: Yes (Life-Threatening, Hospitalization)
  Sender: FDA-Public Use
  Company Number: US-BAYER-2014-061086

PATIENT
  Age: 21 Year
  Sex: Female

DRUGS (2)
  1. MIRENA [Suspect]
     Active Substance: LEVONORGESTREL
     Indication: CONTRACEPTION
     Dosage: 20 MCG/24HR, CONT
     Route: 015
     Dates: start: 2004, end: 2004
  2. DEPO-PROVERA [Concomitant]
     Active Substance: MEDROXYPROGESTERONE ACETATE
     Dosage: UNK
     Dates: start: 2002, end: 2012

REACTIONS (11)
  - Gastrointestinal injury [None]
  - Genital discharge [None]
  - Abdominal pain [None]
  - Anxiety [Not Recovered/Not Resolved]
  - Uterine perforation [None]
  - Device issue [None]
  - Postpartum haemorrhage [None]
  - Injury [None]
  - Emotional distress [Not Recovered/Not Resolved]
  - Premature separation of placenta [None]
  - Wound dehiscence [None]

NARRATIVE: CASE EVENT DATE: 2004
